FAERS Safety Report 8602097-1 (Version None)
Quarter: 2012Q3

REPORT INFORMATION
  Report Type: 
  Country: None (occurrence: None)
  Receive Date: 20120817
  Receipt Date: 20120807
  Transmission Date: 20120928
  Serious: Yes (Other)
  Sender: FDA-Public Use
  Company Number: CN-JNJFOC-20120807073

PATIENT

DRUGS (1)
  1. RISPERIDONE [Suspect]
     Indication: SCHIZOPHRENIA
     Route: 048

REACTIONS (5)
  - ELECTROCARDIOGRAM T WAVE ABNORMAL [None]
  - SINUS BRADYCARDIA [None]
  - SINUS ARRHYTHMIA [None]
  - NODAL ARRHYTHMIA [None]
  - BUNDLE BRANCH BLOCK [None]
